FAERS Safety Report 8212649-9 (Version None)
Quarter: 2012Q1

REPORT INFORMATION
  Report Type: 
  Country: None (occurrence: None)
  Receive Date: 20120315
  Receipt Date: 20120309
  Transmission Date: 20120608
  Serious: Yes (Hospitalization)
  Sender: FDA-Public Use
  Company Number: US-BAYER-2011-096755

PATIENT
  Age: 19 Year
  Sex: Female

DRUGS (3)
  1. YAZ [Suspect]
     Dosage: UNK
     Dates: start: 20080527, end: 20080601
  2. HYDROCODONE BITARTRATE [Concomitant]
  3. AMOXICILLIN [Concomitant]

REACTIONS (4)
  - PAIN [None]
  - CHOLECYSTITIS [None]
  - EMOTIONAL DISTRESS [None]
  - BILIARY COLIC [None]
